FAERS Safety Report 5177350-7 (Version None)
Quarter: 2006Q4

REPORT INFORMATION
  Report Type: 
  Country: None (occurrence: None)
  Receive Date: 20061207
  Receipt Date: 20061124
  Transmission Date: 20070319
  Serious: Yes (Hospitalization, Other)
  Sender: FDA-Public Use
  Company Number: 2006144699

PATIENT
  Age: 67 Year
  Sex: Male
  Weight: 95 kg

DRUGS (3)
  1. SUTENT [Suspect]
     Indication: RENAL CELL CARCINOMA STAGE UNSPECIFIED
     Dosage: (1 IN 1 D)
     Dates: start: 20060901
  2. METHYLPREDNISOLONE                              (MEPREDNISONE) [Concomitant]
  3. TERAZOSIN HCL [Concomitant]

REACTIONS (8)
  - AGEUSIA [None]
  - ANAEMIA [None]
  - ANOREXIA [None]
  - MEDIASTINUM NEOPLASM [None]
  - PALLOR [None]
  - PLATELET COUNT DECREASED [None]
  - SKIN DISCOLOURATION [None]
  - WHITE BLOOD CELL COUNT DECREASED [None]
